FAERS Safety Report 23935829 (Version 1)
Quarter: 2024Q2

REPORT INFORMATION
  Report Type: Spontaneous
  Country: US (occurrence: US)
  Receive Date: 20240604
  Receipt Date: 20240604
  Transmission Date: 20240716
  Serious: Yes (Other)
  Sender: FDA-Public Use
  Company Number: None

PATIENT

DRUGS (1)
  1. TERIPARATIDE [Suspect]
     Active Substance: TERIPARATIDE
     Indication: Product used for unknown indication
     Dosage: 2O MCG/DOSE PEN 250 MCG/ML?EXPIRATION DATE: 30-SEP-2024

REACTIONS (3)
  - Coma [Unknown]
  - Amnesia [Unknown]
  - Product packaging quantity issue [Unknown]
